FAERS Safety Report 20507063 (Version 1)
Quarter: 2022Q1

REPORT INFORMATION
  Report Type: Spontaneous
  Country: CN (occurrence: CN)
  Receive Date: 20220223
  Receipt Date: 20220223
  Transmission Date: 20220424
  Serious: Yes (Life-Threatening)
  Sender: FDA-Public Use
  Company Number: CN-BAYER-2022A027368

PATIENT
  Age: 45 Year
  Sex: Female
  Weight: 53.5 kg

DRUGS (2)
  1. IOPROMIDE [Suspect]
     Active Substance: IOPROMIDE
     Indication: Nasopharyngeal cancer
     Dosage: 80 ML, ONCE
     Route: 042
     Dates: start: 20220114, end: 20220114
  2. IOPROMIDE [Suspect]
     Active Substance: IOPROMIDE
     Indication: Computerised tomogram

REACTIONS (8)
  - Flushing [Recovering/Resolving]
  - Heart rate increased [Recovering/Resolving]
  - Pulse abnormal [Recovering/Resolving]
  - Hyperhidrosis [Recovering/Resolving]
  - Blood pressure decreased [Recovering/Resolving]
  - Erythema [Recovering/Resolving]
  - Feeling cold [None]
  - Chills [None]

NARRATIVE: CASE EVENT DATE: 20220114
